FAERS Safety Report 7361411-8 (Version None)
Quarter: 2011Q1

REPORT INFORMATION
  Report Type: 
  Country: None (occurrence: None)
  Receive Date: 20110318
  Receipt Date: 20110221
  Transmission Date: 20110831
  Serious: No
  Sender: FDA-Public Use
  Company Number: US-B.I. PHARMACEUTICALS,INC./RIDGEFIELD-2011-BP-01575BP

PATIENT
  Sex: Female

DRUGS (11)
  1. SPIRIVA [Suspect]
     Indication: ASTHMA
  2. SYMBICORT [Concomitant]
  3. QUINAPRIL/HCTZ [Concomitant]
  4. METHOTREXATE [Concomitant]
  5. THYROID [Concomitant]
  6. LIPITOR [Concomitant]
  7. RHINOCORT [Concomitant]
  8. UNIPHYL [Concomitant]
  9. SINGULAIR [Concomitant]
  10. SPIRIVA [Suspect]
     Indication: CHRONIC OBSTRUCTIVE PULMONARY DISEASE
     Dosage: 18 MCG
     Route: 055
     Dates: start: 20050101
  11. SPIRIVA [Concomitant]

REACTIONS (1)
  - DYSPNOEA [None]
